FAERS Safety Report 10094850 (Version 1)
Quarter: 2014Q2

REPORT INFORMATION
  Report Type: Spontaneous
  Country: AU (occurrence: None)
  Receive Date: 20140418
  Receipt Date: 20140418
  Transmission Date: 20141212
  Serious: Yes (Other)
  Sender: FDA-Public Use
  Company Number: 2291266

PATIENT
  Age: 79 Year
  Sex: Male

DRUGS (1)
  1. ZOLEDRONIC ACID [Suspect]
     Indication: OSTEITIS DEFORMANS

REACTIONS (5)
  - Pyrexia [None]
  - Chills [None]
  - Myocarditis [None]
  - Myocardial oedema [None]
  - Hyperaemia [None]
